FAERS Safety Report 9570154 (Version 1)
Quarter: 2013Q3

REPORT INFORMATION
  Report Type: Spontaneous
  Country: US (occurrence: US)
  Receive Date: 20130930
  Receipt Date: 20130930
  Transmission Date: 20140515
  Serious: No
  Sender: FDA-Public Use
  Company Number: US-AMGEN-USASP2013064719

PATIENT
  Age: 49 Year
  Sex: 0

DRUGS (6)
  1. ENBREL [Suspect]
     Indication: PRODUCT USED FOR UNKNOWN INDICATION
     Dosage: UNK
     Route: 065
  2. METHOTREXATE [Concomitant]
     Dosage: UNK
  3. MOBIC [Concomitant]
     Dosage: UNK
  4. EXCEDRIN                           /00110301/ [Concomitant]
     Dosage: UNK
  5. ESTROVEN [Concomitant]
     Dosage: UNK
  6. LYRICA [Concomitant]
     Dosage: 50 MG, UNK

REACTIONS (1)
  - Drug hypersensitivity [Unknown]
